FAERS Safety Report 17807296 (Version 2)
Quarter: 2020Q2

REPORT INFORMATION
  Report Type: Spontaneous
  Country: IT (occurrence: IT)
  Receive Date: 20200520
  Receipt Date: 20200524
  Transmission Date: 20200714
  Serious: Yes (Disabling)
  Sender: FDA-Public Use
  Company Number: IT-TEVA-2020-IT-1237714

PATIENT
  Age: 58 Year
  Sex: Female
  Weight: 75 kg

DRUGS (1)
  1. GABAPENTIN TEVA PHARMA 100 MG CAPSULE RIGIDE [Suspect]
     Active Substance: GABAPENTIN
     Indication: ANXIETY
     Route: 048
     Dates: start: 20100101

REACTIONS (4)
  - Disturbance in attention [Recovering/Resolving]
  - Motor dysfunction [Recovering/Resolving]
  - Off label use [Recovering/Resolving]
  - Memory impairment [Recovering/Resolving]
